FAERS Safety Report 9968731 (Version 1)
Quarter: 2014Q1

REPORT INFORMATION
  Report Type: Report from Study
  Country: US (occurrence: US)
  Receive Date: 20140306
  Receipt Date: 20140306
  Transmission Date: 20141002
  Serious: No
  Sender: FDA-Public Use
  Company Number: US-ABBVIE-13P-163-1142708-00

PATIENT
  Age: 46 Year
  Sex: Female

DRUGS (5)
  1. HUMIRA [Suspect]
     Indication: RHEUMATOID ARTHRITIS
     Dates: start: 2010
  2. METHOTREXATE [Concomitant]
     Indication: PRODUCT USED FOR UNKNOWN INDICATION
     Dosage: 6 PILLS WEEKLY
  3. FOLPLEX [Concomitant]
     Indication: VITAMIN SUPPLEMENTATION
  4. PLAQUENIL [Concomitant]
     Indication: PRODUCT USED FOR UNKNOWN INDICATION
     Dosage: 200 MG DAILY, RHEUM. PRESCRIBES IT
  5. TOPAMAX [Concomitant]
     Indication: MIGRAINE

REACTIONS (6)
  - Ocular discomfort [Not Recovered/Not Resolved]
  - Clostridium difficile infection [Unknown]
  - Upper respiratory tract infection [Unknown]
  - Nasal congestion [Not Recovered/Not Resolved]
  - Sneezing [Not Recovered/Not Resolved]
  - Respiratory tract congestion [Not Recovered/Not Resolved]
